FAERS Safety Report 6526007-6 (Version None)
Quarter: 2009Q4

REPORT INFORMATION
  Report Type: 
  Country: None (occurrence: None)
  Receive Date: 20091224
  Receipt Date: 20091214
  Transmission Date: 20100525
  Serious: Yes (Death)
  Sender: FDA-Public Use
  Company Number: 2009003591

PATIENT
  Age: 51 Year
  Sex: Male

DRUGS (4)
  1. TARCEVA [Suspect]
     Indication: CHEMOTHERAPY
     Dosage: (150 MG, QD), ORAL
     Route: 048
     Dates: start: 20070701, end: 20070924
  2. PREVISCAN (FLUINDIONE) [Suspect]
     Indication: DRUG USE FOR UNKNOWN INDICATION
     Dosage: ORAL
     Route: 048
  3. STABLON (TIANEPTINE) [Concomitant]
  4. LAMALINE (LAMALINE) [Concomitant]

REACTIONS (8)
  - ACNE [None]
  - CONDITION AGGRAVATED [None]
  - DRUG INTERACTION [None]
  - DRUG TOXICITY [None]
  - DRY SKIN [None]
  - HAEMOPTYSIS [None]
  - INTERNATIONAL NORMALISED RATIO INCREASED [None]
  - TONGUE DISORDER [None]
